FAERS Safety Report 6757907-X (Version None)
Quarter: 2010Q2

REPORT INFORMATION
  Report Type: 
  Country: None (occurrence: None)
  Receive Date: 20100607
  Receipt Date: 20100602
  Transmission Date: 20101027
  Serious: Yes (Other)
  Sender: FDA-Public Use
  Company Number: US-BRISTOL-MYERS SQUIBB COMPANY-15080740

PATIENT
  Age: 52 Year
  Sex: Male
  Weight: 98 kg

DRUGS (4)
  1. CARBOPLATIN [Suspect]
     Indication: PROSTATE CANCER
     Dosage: 1DF=6AUC
     Route: 042
     Dates: start: 20091014, end: 20100203
  2. CARBOPLATIN [Suspect]
     Indication: CARCINOID SYNDROME
     Dosage: 1DF=6AUC
     Route: 042
     Dates: start: 20091014, end: 20100203
  3. ETOPOSIDE [Suspect]
     Dates: start: 20091014, end: 20100203
  4. SUTENT [Suspect]
     Indication: ENZYME INHIBITION

REACTIONS (5)
  - HYDRONEPHROSIS [None]
  - INTERVERTEBRAL DISC DISORDER [None]
  - MALIGNANT NEOPLASM PROGRESSION [None]
  - PERICARDIAL EFFUSION [None]
  - WEIGHT DECREASED [None]
